FAERS Safety Report 6681451-1 (Version None)
Quarter: 2010Q2

REPORT INFORMATION
  Report Type: 
  Country: None (occurrence: None)
  Receive Date: 20100414
  Receipt Date: 20100406
  Transmission Date: 20101027
  Serious: Yes (Other)
  Sender: FDA-Public Use
  Company Number: US-SANOFI-AVENTIS-2010SA009327

PATIENT
  Age: 67 Year
  Sex: Female
  Weight: 78.47 kg

DRUGS (7)
  1. LANTUS [Suspect]
     Indication: TYPE 2 DIABETES MELLITUS
     Dosage: DOSE:20 UNIT(S)
     Route: 058
     Dates: start: 20040101
  2. SOLOSTAR [Suspect]
     Indication: TYPE 2 DIABETES MELLITUS
  3. METFORMIN HCL [Concomitant]
     Route: 065
  4. COUMADIN [Concomitant]
     Route: 065
     Dates: start: 19860101
  5. ZOCOR [Concomitant]
     Route: 065
  6. DIGOXIN [Concomitant]
     Route: 065
     Dates: start: 20070101
  7. AMIODARONE HCL [Concomitant]
     Route: 065
     Dates: start: 20070101

REACTIONS (1)
  - WEIGHT DECREASED [None]
